FAERS Safety Report 5655924-4 (Version None)
Quarter: 2008Q1

REPORT INFORMATION
  Report Type: 
  Country: None (occurrence: None)
  Receive Date: 20080307
  Receipt Date: 20080304
  Transmission Date: 20080703
  Serious: Yes (Hospitalization)
  Sender: FDA-Public Use
  Company Number: US-BOEHRINGER INGELHEIM GMBH, GERMANY-2008-BP-03329RO

PATIENT
  Sex: Female

DRUGS (13)
  1. PREDNISONE TAB [Suspect]
     Indication: RENAL TRANSPLANT
     Dates: start: 20020820
  2. BELATACEPT [Suspect]
     Indication: RENAL TRANSPLANT
     Route: 042
     Dates: start: 20020820
  3. CELLCEPT [Suspect]
     Indication: RENAL TRANSPLANT
     Dates: start: 20020820
  4. NORVASC [Concomitant]
     Dates: start: 20021021
  5. MUTIVITAMIN [Concomitant]
     Dates: start: 20020821
  6. PEPCID [Concomitant]
     Dates: start: 20040205
  7. CALCIUM [Concomitant]
     Dates: start: 20040205
  8. TRAZODONE HCL [Concomitant]
     Dates: start: 20050104
  9. IMODIUM [Concomitant]
     Dates: start: 20051013
  10. INFLUENZA VACCINE [Concomitant]
     Dates: start: 20061010
  11. VASOTEC [Concomitant]
     Dates: start: 20061108
  12. COUMADIN [Concomitant]
     Dates: start: 20070125
  13. DOXYCYCLINE [Concomitant]

REACTIONS (1)
  - CYTOMEGALOVIRUS COLITIS [None]
